FAERS Safety Report 21734732 (Version 3)
Quarter: 2023Q1

REPORT INFORMATION
  Report Type: Spontaneous
  Country: US (occurrence: US)
  Receive Date: 20221215
  Receipt Date: 20230224
  Transmission Date: 20230418
  Serious: Yes (Hospitalization)
  Sender: FDA-Public Use
  Company Number: US-TEVA-2022-US-2834670

PATIENT
  Age: 47 Year
  Sex: Male

DRUGS (9)
  1. DEXAMETHASONE [Suspect]
     Active Substance: DEXAMETHASONE
     Indication: B precursor type acute leukaemia
     Dosage: 4 MILLIGRAM DAILY; ADMINISTERED UNDER THE HYPER-CVAD REGIMEN, 4 MG ONCE A DAY
     Route: 065
     Dates: start: 2021, end: 202112
  2. DEXAMETHASONE [Suspect]
     Active Substance: DEXAMETHASONE
     Indication: COVID-19
     Route: 065
     Dates: start: 2022, end: 202204
  3. DOXORUBICIN [Suspect]
     Active Substance: DOXORUBICIN
     Indication: B precursor type acute leukaemia
     Dosage: ADMINISTERED UNDER THE HYPER-CVAD REGIMEN
     Route: 065
     Dates: start: 2021, end: 202112
  4. METHOTREXATE [Suspect]
     Active Substance: METHOTREXATE
     Indication: B precursor type acute leukaemia
     Dosage: ADMINISTERED UNDER THE HYPER-CVAD REGIMEN
     Route: 065
     Dates: start: 2021, end: 202112
  5. RITUXIMAB [Suspect]
     Active Substance: RITUXIMAB
     Indication: B precursor type acute leukaemia
     Route: 050
     Dates: start: 2021, end: 202112
  6. CYCLOPHOSPHAMIDE [Suspect]
     Active Substance: CYCLOPHOSPHAMIDE
     Indication: B precursor type acute leukaemia
     Dosage: ADMINISTERED UNDER THE HYPER-CVAD REGIMEN
     Route: 065
     Dates: start: 2021, end: 202112
  7. VINCRISTINE [Suspect]
     Active Substance: VINCRISTINE
     Indication: B precursor type acute leukaemia
     Dosage: ADMINISTERED UNDER THE HYPER-CVAD REGIMEN
     Route: 065
     Dates: start: 2021, end: 202112
  8. CYTARABINE [Suspect]
     Active Substance: CYTARABINE
     Indication: B precursor type acute leukaemia
     Dosage: ADMINISTERED UNDER THE HYPER-CVAD REGIMEN
     Route: 065
     Dates: start: 2021, end: 202112
  9. AMBISOME [Concomitant]
     Active Substance: AMPHOTERICIN B
     Indication: Prophylaxis
     Route: 065

REACTIONS (6)
  - COVID-19 [Recovered/Resolved]
  - Transaminases increased [Recovered/Resolved]
  - Thrombocytopenia [Recovered/Resolved]
  - Lymphopenia [Recovered/Resolved]
  - Drug ineffective for unapproved indication [Unknown]
  - Off label use [Unknown]

NARRATIVE: CASE EVENT DATE: 20220302
